FAERS Safety Report 9166202 (Version 1)
Quarter: 2013Q1

REPORT INFORMATION
  Report Type: Spontaneous
  Country: GR (occurrence: None)
  Receive Date: 20130301
  Receipt Date: 20130301
  Transmission Date: 20140127
  Serious: Yes (Life-Threatening, Hospitalization, Other)
  Sender: FDA-Public Use
  Company Number: 2013P1002653

PATIENT
  Age: 16 Year
  Sex: Female

DRUGS (8)
  1. ZANTAC [Suspect]
  2. RANITIDINE HYDROCHLORIDE (FORMULATION UNKNOWN) [Suspect]
     Route: 042
  3. LATAMOXEF [Concomitant]
  4. DISODIUM(CON.) [Concomitant]
  5. ANESTHETIC (CON.) [Concomitant]
  6. ANTI-EMETIC (CON.) [Concomitant]
  7. H2 ANTAGONIST (CON.) [Concomitant]
  8. CEFOXITIN SODIUM [Concomitant]

REACTIONS (8)
  - Anaphylactic shock [None]
  - Urticaria [None]
  - Dizziness [None]
  - Bone pain [None]
  - Headache [None]
  - Hypotension [None]
  - Bronchospasm [None]
  - Angioedema [None]
